FAERS Safety Report 17851821 (Version 1)
Quarter: 2020Q2

REPORT INFORMATION
  Report Type: Spontaneous
  Country: BR (occurrence: BR)
  Receive Date: 20200602
  Receipt Date: 20200602
  Transmission Date: 20200714
  Serious: Yes (Death, Hospitalization, Other)
  Sender: FDA-Public Use
  Company Number: BR-SA-2020SA139919

PATIENT

DRUGS (15)
  1. POTASSIUM CHLORIDE. [Concomitant]
     Active Substance: POTASSIUM CHLORIDE
     Dosage: 20 ML
     Route: 042
     Dates: start: 20191206, end: 20200104
  2. FLUIMUCIL [Concomitant]
     Active Substance: ACETYLCYSTEINE
     Dosage: 600 MG, QD
     Dates: start: 20191211, end: 20200107
  3. LYRICA [Concomitant]
     Active Substance: PREGABALIN
     Dosage: 75 MG, QD
     Dates: start: 20191204, end: 20200102
  4. NOREPINEPHRINE. [Concomitant]
     Active Substance: NOREPINEPHRINE
     Dosage: 16 MG
     Route: 042
     Dates: start: 20191204, end: 20200108
  5. SODIUM CHLORIDE. [Concomitant]
     Active Substance: SODIUM CHLORIDE
     Dosage: 400 ML
     Route: 042
     Dates: start: 20191203, end: 20200104
  6. DIGOXIN. [Concomitant]
     Active Substance: DIGOXIN
     Dosage: 0.25 MG, QD
     Dates: start: 20191230, end: 20200107
  7. LASIX [Concomitant]
     Active Substance: FUROSEMIDE
     Dosage: 40 MG, BID
     Dates: start: 20191205, end: 20200108
  8. ZOLTEC [Concomitant]
     Active Substance: FLUCONAZOLE
     Dosage: 200 MG, BID
     Route: 042
     Dates: start: 20191230, end: 20200102
  9. CLEXANE [Suspect]
     Active Substance: ENOXAPARIN SODIUM
     Dosage: 60 MG, BID
     Route: 058
     Dates: start: 20191216, end: 20200106
  10. EBIX [Concomitant]
     Active Substance: MEMANTINE HYDROCHLORIDE
     Dosage: 20 MG
     Dates: start: 20191204, end: 20200107
  11. MERONEM [Concomitant]
     Active Substance: MEROPENEM
     Dosage: 1 G, TID
     Route: 042
     Dates: start: 20191204, end: 20200108
  12. NEXIUM I.V. [Concomitant]
     Active Substance: ESOMEPRAZOLE SODIUM
     Dosage: 20 MG, QD
     Dates: start: 20191208, end: 20200108
  13. LINEZOLID. [Suspect]
     Active Substance: LINEZOLID
     Indication: SEPSIS
     Dosage: 600 MG, BID
     Route: 042
     Dates: start: 20191231, end: 20200109
  14. AMIKACIN. [Concomitant]
     Active Substance: AMIKACIN
     Dosage: 300 MG, BID
     Route: 042
     Dates: start: 20200101, end: 20200107
  15. FLORINEFE [Concomitant]
     Dosage: 0.2 MG, BID
     Dates: start: 20191231, end: 20200107

REACTIONS (2)
  - Thrombocytopenia [Unknown]
  - Death [Fatal]

NARRATIVE: CASE EVENT DATE: 20200109
